FAERS Safety Report 24096815 (Version 1)
Quarter: 2024Q3

REPORT INFORMATION
  Report Type: Spontaneous
  Country: US (occurrence: US)
  Receive Date: 20240716
  Receipt Date: 20240716
  Transmission Date: 20241016
  Serious: Yes (Other)
  Sender: PFIZER
  Company Number: US-PFIZER INC-202400213618

PATIENT
  Sex: Female

DRUGS (1)
  1. TISOTUMAB VEDOTIN [Suspect]
     Active Substance: TISOTUMAB VEDOTIN
     Dosage: 2 CYCLES

REACTIONS (3)
  - Eye disorder [Unknown]
  - Ocular toxicity [Not Recovered/Not Resolved]
  - Impaired driving ability [Unknown]
